FAERS Safety Report 12501788 (Version 1)
Quarter: 2016Q2

REPORT INFORMATION
  Report Type: Spontaneous
  Country: VE (occurrence: VE)
  Receive Date: 20160627
  Receipt Date: 20160627
  Transmission Date: 20160815
  Serious: Yes (Hospitalization, Other)
  Sender: FDA-Public Use
  Company Number: VE-BAYER-2016-116662

PATIENT
  Age: 69 Year
  Sex: Male

DRUGS (1)
  1. NEXAVAR [Suspect]
     Active Substance: SORAFENIB
     Indication: RENAL CELL CARCINOMA
     Dosage: UNK
     Dates: start: 201507, end: 201605

REACTIONS (3)
  - Myocardial infarction [Recovering/Resolving]
  - Ejection fraction abnormal [None]
  - Renal cell carcinoma [None]

NARRATIVE: CASE EVENT DATE: 2016
